FAERS Safety Report 19087760 (Version 3)
Quarter: 2021Q2

REPORT INFORMATION
  Report Type: Spontaneous
  Country: US (occurrence: US)
  Receive Date: 20210402
  Receipt Date: 20210427
  Transmission Date: 20210717
  Serious: Yes (Other)
  Sender: FDA-Public Use
  Company Number: US-JNJFOC-20210401999

PATIENT
  Sex: Male

DRUGS (3)
  1. STELARA [Suspect]
     Active Substance: USTEKINUMAB
     Indication: COLITIS ULCERATIVE
     Dosage: THE LAST DOSE OF PRODUCT WAS RECEIVED ON 01JAN2021 AND NEXT DOSE WAS SCHEDULED TO  01APR2021.
     Route: 058
  2. JANSSEN COVID?19 VACCINE [Suspect]
     Active Substance: AD26.COV2.S
     Indication: IMMUNISATION
     Route: 065
     Dates: start: 2021, end: 2021
  3. STELARA [Suspect]
     Active Substance: USTEKINUMAB

REACTIONS (4)
  - Product label confusion [Unknown]
  - Hypertension [Unknown]
  - Dyspepsia [Unknown]
  - Diabetes mellitus [Unknown]

NARRATIVE: CASE EVENT DATE: 2021
